FAERS Safety Report 9560673 (Version 2)
Quarter: 2014Q2

REPORT INFORMATION
  Report Type: Spontaneous
  Country: US (occurrence: US)
  Receive Date: 20130927
  Receipt Date: 20140414
  Transmission Date: 20141212
  Serious: No
  Sender: FDA-Public Use
  Company Number: US-BIOGENIDEC-2013BI053084

PATIENT
  Age: 45 Year
  Sex: Female

DRUGS (5)
  1. TECFIDERA [Suspect]
     Indication: MULTIPLE SCLEROSIS
  2. TECFIDERA [Suspect]
     Indication: MULTIPLE SCLEROSIS
     Route: 048
     Dates: start: 2013
  3. TRIMETHOPRIM [Concomitant]
  4. AMPYRA [Concomitant]
  5. LECCITHIN- 19 [Concomitant]

REACTIONS (5)
  - Paraesthesia [Unknown]
  - Urticaria [Recovered/Resolved]
  - Erythema [Unknown]
  - Pruritus [Unknown]
  - Rash erythematous [Recovered/Resolved]
